FAERS Safety Report 20827867 (Version 1)
Quarter: 2022Q2

REPORT INFORMATION
  Report Type: Spontaneous
  Country: US (occurrence: US)
  Receive Date: 20220513
  Receipt Date: 20220513
  Transmission Date: 20220721
  Serious: No
  Sender: FDA-Public Use
  Company Number: US-PFIZER INC-202101212149

PATIENT
  Age: 60 Year
  Sex: Female
  Weight: 81.65 kg

DRUGS (1)
  1. TRIAZOLAM [Suspect]
     Active Substance: TRIAZOLAM
     Indication: Insomnia
     Dosage: 0.5 MG, DAILY (0.25 MG, TAKES TWO AT NIGHT)
     Dates: start: 2018

REACTIONS (6)
  - Nightmare [Not Recovered/Not Resolved]
  - Hangover [Not Recovered/Not Resolved]
  - Drug ineffective [Unknown]
  - Poor quality product administered [Unknown]
  - Product container issue [Unknown]
  - Product complaint [Unknown]

NARRATIVE: CASE EVENT DATE: 20210901
